FAERS Safety Report 24289518 (Version 2)
Quarter: 2024Q3

REPORT INFORMATION
  Report Type: Report from Study
  Country: US (occurrence: US)
  Receive Date: 20240906
  Receipt Date: 20240909
  Transmission Date: 20241016
  Serious: No
  Sender: ROCHE
  Company Number: US-ROCHE-10000075406

PATIENT
  Age: 59 Year
  Sex: Female
  Weight: 52.61 kg

DRUGS (10)
  1. OCREVUS [Suspect]
     Active Substance: OCRELIZUMAB
     Indication: Relapsing multiple sclerosis
     Route: 042
  2. PAXLOVID [Concomitant]
     Active Substance: NIRMATRELVIR\RITONAVIR
     Dosage: DOSE STRENGTH: 300MG/100MG?DOSAGE INFORMATION: TAKING TWICE A DAY FOR 5 DAYS
     Dates: start: 20240903
  3. TYLENOL [Concomitant]
     Active Substance: ACETAMINOPHEN
  4. GILENYA [Concomitant]
     Active Substance: FINGOLIMOD HYDROCHLORIDE
  5. ACETYLCARNITINE HCL [Concomitant]
  6. WELLBUTRIN XL [Concomitant]
     Active Substance: BUPROPION HYDROCHLORIDE
  7. ESTRADIOL [Concomitant]
     Active Substance: ESTRADIOL
  8. IBUPROFEN [Concomitant]
     Active Substance: IBUPROFEN
  9. BACTROBAN [Concomitant]
     Active Substance: MUPIROCIN CALCIUM
  10. FISH OIL [Concomitant]
     Active Substance: FISH OIL

REACTIONS (7)
  - Pain [Not Recovered/Not Resolved]
  - Nausea [Recovered/Resolved]
  - Rhinorrhoea [Not Recovered/Not Resolved]
  - Cough [Not Recovered/Not Resolved]
  - Lower respiratory tract congestion [Not Recovered/Not Resolved]
  - COVID-19 [Unknown]
  - Pyrexia [Unknown]

NARRATIVE: CASE EVENT DATE: 20240902
